FAERS Safety Report 11759650 (Version 5)
Quarter: 2016Q3

REPORT INFORMATION
  Report Type: Spontaneous
  Country: US (occurrence: US)
  Receive Date: 20151120
  Receipt Date: 20160706
  Transmission Date: 20161109
  Serious: Yes (Death, Hospitalization)
  Sender: FDA-Public Use
  Company Number: US-ACTELION-A-US2015-127405

PATIENT
  Age: 51 Year
  Sex: Female

DRUGS (16)
  1. OPSUMIT [Suspect]
     Active Substance: MACITENTAN
     Indication: PULMONARY ARTERIAL HYPERTENSION
     Dosage: 10 MG, QD
     Route: 048
     Dates: start: 20150430, end: 20160526
  2. SPIRONOLACTONE. [Concomitant]
     Active Substance: SPIRONOLACTONE
  3. KLOR-CON [Concomitant]
     Active Substance: POTASSIUM CHLORIDE
  4. FUROSEMIDE. [Concomitant]
     Active Substance: FUROSEMIDE
  5. HYDROCODONE [Concomitant]
     Active Substance: HYDROCODONE
  6. PROMETHAZINE [Concomitant]
     Active Substance: PROMETHAZINE\PROMETHAZINE HYDROCHLORIDE
  7. FAMOTIDINE. [Concomitant]
     Active Substance: FAMOTIDINE
  8. PAROXETINE. [Concomitant]
     Active Substance: PAROXETINE
  9. ENALAPRIL [Concomitant]
     Active Substance: ENALAPRIL
  10. LANTUS [Concomitant]
     Active Substance: INSULIN GLARGINE
  11. ADCIRCA [Concomitant]
     Active Substance: TADALAFIL
  12. HUMALOG [Concomitant]
     Active Substance: INSULIN LISPRO
  13. LORAZEPAM. [Concomitant]
     Active Substance: LORAZEPAM
  14. METOLAZONE. [Concomitant]
     Active Substance: METOLAZONE
  15. DOCUSATE [Concomitant]
     Active Substance: DOCUSATE
  16. SENNA [Concomitant]
     Active Substance: SENNA LEAF\SENNOSIDES\SENNOSIDES A AND B

REACTIONS (7)
  - Pulmonary oedema [Not Recovered/Not Resolved]
  - Death [Fatal]
  - Cardiomegaly [Not Recovered/Not Resolved]
  - Dyspnoea [Not Recovered/Not Resolved]
  - Hypotension [Not Recovered/Not Resolved]
  - Urinary tract infection [Recovered/Resolved]
  - Fluid retention [Recovered/Resolved]

NARRATIVE: CASE EVENT DATE: 20151028
